FAERS Safety Report 4536860-3 (Version None)
Quarter: 2004Q4

REPORT INFORMATION
  Report Type: 
  Country: None (occurrence: None)
  Receive Date: 20041220
  Receipt Date: 20041206
  Transmission Date: 20050328
  Serious: Yes (Other)
  Sender: FDA-Public Use
  Company Number: 2004106518

PATIENT
  Age: 66 Year
  Sex: Male
  Weight: 57 kg

DRUGS (2)
  1. ATORVASTATIN (ATORVASTATIN) [Suspect]
     Indication: ILL-DEFINED DISORDER
     Dosage: 10 MG, ORAL
     Route: 048
     Dates: start: 20041108
  2. ASPIRIN [Concomitant]

REACTIONS (1)
  - HERPES ZOSTER [None]
